FAERS Safety Report 19195390 (Version 1)
Quarter: 2021Q2

REPORT INFORMATION
  Report Type: Spontaneous
  Country: US (occurrence: US)
  Receive Date: 20210429
  Receipt Date: 20210429
  Transmission Date: 20210717
  Serious: No
  Sender: FDA-Public Use
  Company Number: US-BEH-2021130786

PATIENT
  Sex: Female

DRUGS (1)
  1. HIZENTRA [Suspect]
     Active Substance: HUMAN IMMUNOGLOBULIN G
     Indication: HUMORAL IMMUNE DEFECT
     Dosage: 10 GM (50 ML) ON DAY ONE AND 6 GM(30 ML) ON DAY TWO, QW
     Route: 058
     Dates: start: 202103

REACTIONS (2)
  - Infection [Unknown]
  - Dyspnoea [Unknown]
